FAERS Safety Report 5236098-0 (Version None)
Quarter: 2007Q1

REPORT INFORMATION
  Report Type: 
  Country: None (occurrence: None)
  Receive Date: 20070212
  Receipt Date: 20070129
  Transmission Date: 20070707
  Serious: Yes (Death)
  Sender: FDA-Public Use
  Company Number: GB-AMGEN-UK209511

PATIENT

DRUGS (1)
  1. CINACALCET [Suspect]
     Indication: HYPERPARATHYROIDISM SECONDARY

REACTIONS (1)
  - DEATH [None]
